FAERS Safety Report 9307899 (Version 4)
Quarter: 2013Q3

REPORT INFORMATION
  Report Type: Report from Study
  Country: AU (occurrence: AU)
  Receive Date: 20130524
  Receipt Date: 20130731
  Transmission Date: 20140515
  Serious: Yes (Hospitalization, Other)
  Sender: FDA-Public Use
  Company Number: PHHY2013AU051690

PATIENT
  Age: 43 Year
  Sex: Female

DRUGS (9)
  1. CLOZARIL [Suspect]
     Indication: SCHIZOPHRENIA
     Dosage: 125 MG, UNK
     Dates: start: 20130503
  2. CLOZARIL [Suspect]
     Dosage: UNK UKN, UNK
     Dates: start: 20130506
  3. CLOZARIL [Suspect]
     Dosage: UNK UKN, UNK
     Dates: end: 20130522
  4. HALOPERIDOL [Concomitant]
     Dosage: 8 UG, NOCTE
     Route: 048
     Dates: start: 20130607, end: 20130617
  5. HALOPERIDOL [Concomitant]
     Dosage: 10 MG, NOCTE
     Route: 048
     Dates: start: 20130618
  6. RAMIPRIL [Concomitant]
     Dosage: 2.5 MG, NOCTE
     Route: 048
  7. ATORVASTATIN [Concomitant]
     Dosage: 40 MG, NOCTE
     Route: 048
  8. DIAZEPAM [Concomitant]
     Dosage: 5 MG, NOCTE
     Route: 048
  9. OMEPRAZOLE [Concomitant]
     Dosage: 20 MG, MANE
     Route: 048

REACTIONS (17)
  - Arthralgia [Unknown]
  - Malaise [Not Recovered/Not Resolved]
  - Myocarditis [Not Recovered/Not Resolved]
  - Pyrexia [Not Recovered/Not Resolved]
  - Tachycardia [Not Recovered/Not Resolved]
  - Electrocardiogram ST segment elevation [Not Recovered/Not Resolved]
  - Cardiac enzymes increased [Unknown]
  - Troponin I increased [Recovering/Resolving]
  - C-reactive protein increased [Unknown]
  - Left ventricular dysfunction [Unknown]
  - Electrocardiogram abnormal [Unknown]
  - Electrocardiogram ST-T change [Unknown]
  - Brain natriuretic peptide increased [Unknown]
  - Ejection fraction decreased [Unknown]
  - Hypotension [Unknown]
  - Heart rate increased [Not Recovered/Not Resolved]
  - Nausea [Recovering/Resolving]
